FAERS Safety Report 5344214-5 (Version None)
Quarter: 2007Q2

REPORT INFORMATION
  Report Type: 
  Country: None (occurrence: None)
  Receive Date: 20070604
  Receipt Date: 20070531
  Transmission Date: 20071010
  Serious: Yes (Hospitalization)
  Sender: FDA-Public Use
  Company Number: US-BRISTOL-MYERS SQUIBB COMPANY-13799150

PATIENT
  Age: 58 Year
  Sex: Male
  Weight: 58 kg

DRUGS (3)
  1. CETUXIMAB [Suspect]
     Indication: LARYNGEAL CANCER
     Dates: start: 20070522
  2. CISPLATIN [Suspect]
     Indication: LARYNGEAL CANCER
     Dates: start: 20070515
  3. RADIOTHERAPY [Suspect]
     Indication: LARYNGEAL CANCER
     Dates: start: 20070525

REACTIONS (5)
  - EPISTAXIS [None]
  - HAEMOGLOBIN [None]
  - HAEMOGLOBIN ABNORMAL [None]
  - PLATELET DISORDER [None]
  - WHITE BLOOD CELL DISORDER [None]
